FAERS Safety Report 5920348-9 (Version None)
Quarter: 2008Q4

REPORT INFORMATION
  Report Type: 
  Country: None (occurrence: None)
  Receive Date: 20081016
  Receipt Date: 20081007
  Transmission Date: 20090506
  Serious: Yes (Hospitalization, Other)
  Sender: FDA-Public Use
  Company Number: PHHY2008BR03966

PATIENT
  Sex: Female
  Weight: 51 kg

DRUGS (5)
  1. FORASEQ [Suspect]
     Indication: ASTHMA
     Dosage: 2 CAPS MORNING AND NIGHT
     Dates: start: 20050101, end: 20080716
  2. FORASEQ [Suspect]
     Dosage: UNK
  3. ALENDRONATE SODIUM [Concomitant]
     Indication: OSTEOPOROSIS
     Dosage: UNK, QD
     Route: 048
     Dates: start: 20050101
  4. NEOX [Concomitant]
     Dosage: UNK
  5. CALCIUM [Concomitant]
     Indication: OSTEOPOROSIS
     Dosage: 500 MG, QD
     Route: 048
     Dates: start: 20060101

REACTIONS (13)
  - ASTHMA [None]
  - BRONCHITIS [None]
  - CONDITION AGGRAVATED [None]
  - COUGH [None]
  - DEVICE MALFUNCTION [None]
  - DYSPNOEA [None]
  - FATIGUE [None]
  - FEELING ABNORMAL [None]
  - INCREASED BRONCHIAL SECRETION [None]
  - LABYRINTHITIS [None]
  - MALAISE [None]
  - NASOPHARYNGITIS [None]
  - VOMITING [None]
